FAERS Safety Report 9414094 (Version 1)
Quarter: 2013Q3

REPORT INFORMATION
  Report Type: Spontaneous
  Country: US (occurrence: US)
  Receive Date: 20130723
  Receipt Date: 20130723
  Transmission Date: 20140515
  Serious: Yes (Other)
  Sender: FDA-Public Use
  Company Number: US-BIOGENIDEC-2005BI016724

PATIENT
  Age: 53 Year
  Sex: Female
  Weight: 54 kg

DRUGS (9)
  1. AVONEX [Suspect]
     Indication: MULTIPLE SCLEROSIS
     Route: 030
     Dates: start: 20050823, end: 20110404
  2. BACLOFEN [Concomitant]
     Indication: MUSCLE SPASMS
     Dates: start: 1991
  3. SOMA [Concomitant]
     Indication: MUSCLE SPASMS
     Dates: start: 1991
  4. SYMMETREL [Concomitant]
     Indication: FATIGUE
     Dates: start: 1991
  5. VIVELLE PATCHES (ESTRADIOL) [Concomitant]
     Indication: HORMONE LEVEL ABNORMAL
     Dates: start: 1983
  6. NEURONTIN [Concomitant]
     Indication: NEURALGIA
     Dates: start: 200501
  7. ACIPHEX [Concomitant]
     Indication: GASTROOESOPHAGEAL REFLUX DISEASE
     Dates: start: 2003
  8. VALIUM [Concomitant]
     Indication: MUSCLE SPASTICITY
     Dates: start: 1991
  9. KLOR-CON [Concomitant]
     Indication: BLOOD POTASSIUM
     Dates: start: 200103

REACTIONS (3)
  - Convulsion [Recovered/Resolved]
  - Blood cholesterol increased [Unknown]
  - Influenza like illness [Recovered/Resolved]
